FAERS Safety Report 18716584 (Version 1)
Quarter: 2021Q1

REPORT INFORMATION
  Report Type: Report from Study
  Country: IT (occurrence: IT)
  Receive Date: 20210108
  Receipt Date: 20210108
  Transmission Date: 20210419
  Serious: Yes (Other)
  Sender: FDA-Public Use
  Company Number: IT-RECORDATI RARE DISEASES-2104112

PATIENT
  Age: 38 Year
  Sex: Female

DRUGS (4)
  1. DIBASE [Concomitant]
     Active Substance: CHOLECALCIFEROL
     Route: 048
     Dates: start: 20170206
  2. BRUFEN [Concomitant]
     Active Substance: IBUPROFEN
     Route: 048
  3. PEGVISOMANT [Concomitant]
     Active Substance: PEGVISOMANT
     Route: 058
     Dates: start: 20180323
  4. SIGNIFOR [Suspect]
     Active Substance: PASIREOTIDE DIASPARTATE

REACTIONS (3)
  - Diabetes mellitus [Unknown]
  - Hyperglycaemia [Unknown]
  - Drug ineffective [Unknown]

NARRATIVE: CASE EVENT DATE: 20170810
